FAERS Safety Report 4800037-4 (Version None)
Quarter: 2005Q4

REPORT INFORMATION
  Report Type: 
  Country: None (occurrence: None)
  Receive Date: 20051017
  Receipt Date: 20051006
  Transmission Date: 20060501
  Serious: Yes (Death)
  Sender: FDA-Public Use
  Company Number: US-JNJFOC-20051001609

PATIENT
  Sex: Male

DRUGS (18)
  1. INFLIXIMAB [Suspect]
     Indication: RHEUMATOID ARTHRITIS
     Route: 042
  2. ALTACE [Concomitant]
  3. ASPIRIN [Concomitant]
  4. DIOVAN [Concomitant]
  5. DITROPAN [Concomitant]
  6. FOLATE [Concomitant]
  7. GLIPZIDE [Concomitant]
  8. KLOR-CON [Concomitant]
  9. LASIX [Concomitant]
  10. MECLIZINE [Concomitant]
  11. METHOTREXATE [Concomitant]
  12. METOPROLOL [Concomitant]
  13. PROSCAR [Concomitant]
  14. PROZAC [Concomitant]
  15. ZYRTEC [Concomitant]
  16. MOBIC [Concomitant]
  17. ZOCOR [Concomitant]
  18. PROTONIX [Concomitant]

REACTIONS (1)
  - LUNG NEOPLASM MALIGNANT [None]
